FAERS Safety Report 6102544-3 (Version None)
Quarter: 2009Q1

REPORT INFORMATION
  Report Type: 
  Country: None (occurrence: None)
  Receive Date: 20090304
  Receipt Date: 20080812
  Transmission Date: 20090719
  Serious: No
  Sender: FDA-Public Use
  Company Number: A0742188A

PATIENT
  Age: 82 Year
  Sex: Male

DRUGS (5)
  1. REQUIP [Suspect]
     Indication: RESTLESS LEGS SYNDROME
     Dosage: .25MG PER DAY
     Route: 048
     Dates: start: 20080708
  2. ATENOLOL [Concomitant]
  3. TRIAMTERENE [Concomitant]
  4. ALLOPURINOL [Concomitant]
  5. FLUOXETINE [Concomitant]

REACTIONS (1)
  - MUSCLE SPASMS [None]
